FAERS Safety Report 8218758-2 (Version None)
Quarter: 2012Q1

REPORT INFORMATION
  Report Type: 
  Country: None (occurrence: None)
  Receive Date: 20120319
  Receipt Date: 20120313
  Transmission Date: 20120608
  Serious: Yes (Hospitalization)
  Sender: FDA-Public Use
  Company Number: PHEH2012US005820

PATIENT
  Sex: Male

DRUGS (1)
  1. EXJADE [Suspect]
     Indication: IRON OVERLOAD
     Dosage: 1500 MG, DAILY
     Route: 048
     Dates: start: 20100616

REACTIONS (3)
  - INFECTION [None]
  - FULL BLOOD COUNT DECREASED [None]
  - NASOPHARYNGITIS [None]
